FAERS Safety Report 24131728 (Version 1)
Quarter: 2024Q3

REPORT INFORMATION
  Report Type: Spontaneous
  Country: SD (occurrence: SD)
  Receive Date: 20240724
  Receipt Date: 20240724
  Transmission Date: 20241017
  Serious: Yes (Other)
  Sender: HIKMA
  Company Number: SD-HIKMA PHARMACEUTICALS USA INC.-SD-H14001-24-06798

PATIENT
  Age: 39 Year
  Sex: Female

DRUGS (3)
  1. PHENYTOIN [Suspect]
     Active Substance: PHENYTOIN
     Indication: Generalised tonic-clonic seizure
     Dosage: UNKNOWN
     Route: 042
  2. CARBAMAZEPINE [Concomitant]
     Active Substance: CARBAMAZEPINE
     Dosage: 1000MG
     Route: 050
  3. CARBAMAZEPINE [Concomitant]
     Active Substance: CARBAMAZEPINE
     Indication: Seizure prophylaxis
     Dosage: 200MG
     Route: 050

REACTIONS (2)
  - Maternal exposure during pregnancy [Unknown]
  - Coma [Unknown]
